FAERS Safety Report 6310891-5 (Version None)
Quarter: 2009Q3

REPORT INFORMATION
  Report Type: 
  Country: None (occurrence: None)
  Receive Date: 20090812
  Receipt Date: 20090731
  Transmission Date: 20100115
  Serious: Yes (Death)
  Sender: FDA-Public Use
  Company Number: CLOF-1000635

PATIENT
  Age: 15 Year
  Weight: 60 kg

DRUGS (4)
  1. EVOLTRA (CLOFARABINE) SOLUTION FOR INFUSION [Suspect]
     Indication: ACUTE LYMPHOCYTIC LEUKAEMIA
  2. ETOPOSIDE [Concomitant]
  3. CYCLOPHOSPHAMIDE (CYCPHOSPHAMIDE) [Concomitant]
  4. AMBISOME [Concomitant]

REACTIONS (2)
  - CAPILLARY LEAK SYNDROME [None]
  - DIARRHOEA [None]
